FAERS Safety Report 5114270-8 (Version None)
Quarter: 2006Q3

REPORT INFORMATION
  Report Type: 
  Country: None (occurrence: None)
  Receive Date: 20060925
  Receipt Date: 20060915
  Transmission Date: 20061208
  Serious: Yes (Other)
  Sender: FDA-Public Use
  Company Number: JP-BRISTOL-MYERS SQUIBB COMPANY-13516513

PATIENT
  Age: 94 Year
  Sex: Female

DRUGS (3)
  1. GATIFLO [Suspect]
     Indication: PNEUMONIA
     Route: 048
     Dates: start: 20060906, end: 20060908
  2. CORINAEL L [Concomitant]
     Route: 048
  3. PRAVASTATIN SODIUM [Concomitant]
     Route: 048

REACTIONS (1)
  - HYPOGLYCAEMIA [None]
